FAERS Safety Report 18833581 (Version 3)
Quarter: 2021Q1

REPORT INFORMATION
  Report Type: Report from Study
  Country: None (occurrence: ES)
  Receive Date: 20210203
  Receipt Date: 20210211
  Transmission Date: 20210419
  Serious: Yes (Death, Other)
  Sender: FDA-Public Use
  Company Number: ES-ABBVIE-21K-144-3755780-00

PATIENT
  Age: 70 Year
  Sex: Female
  Weight: 54 kg

DRUGS (2)
  1. DUODOPA [Suspect]
     Active Substance: CARBIDOPA\LEVODOPA
  2. DUODOPA [Suspect]
     Active Substance: CARBIDOPA\LEVODOPA
     Indication: PARKINSON^S DISEASE
     Dosage: MORNING DOSE 4 ML, CONTINUOUS DOSE 1.2 ML/H, EXTRA DOSE 1 ML, 16 HOURS PER DAY
     Route: 050
     Dates: start: 20150429

REACTIONS (7)
  - Dyspnoea [Unknown]
  - Acute respiratory failure [Fatal]
  - Pyrexia [Fatal]
  - Dyspnoea [Fatal]
  - Respiratory tract infection [Unknown]
  - COVID-19 [Fatal]
  - Unevaluable event [Unknown]

NARRATIVE: CASE EVENT DATE: 2021
